FAERS Safety Report 5818752-2 (Version None)
Quarter: 2008Q3

REPORT INFORMATION
  Report Type: 
  Country: None (occurrence: None)
  Receive Date: 20080718
  Receipt Date: 20080718
  Transmission Date: 20090109
  Serious: Yes (Life-Threatening, Hospitalization)
  Sender: FDA-Public Use
  Company Number: None

PATIENT
  Age: 76 Year
  Sex: Female
  Weight: 65 kg

DRUGS (2)
  1. HUMIRA [Suspect]
     Indication: RHEUMATOID ARTHRITIS
     Dosage: 40MG EVERY OTH WEEK WITH PREDNISONE 5MG
     Dates: start: 20070601, end: 20080701
  2. PREDNISONE [Concomitant]

REACTIONS (2)
  - ATRIAL FIBRILLATION [None]
  - ENDOCARDITIS STAPHYLOCOCCAL [None]
